FAERS Safety Report 6233036-9 (Version None)
Quarter: 2009Q2

REPORT INFORMATION
  Report Type: 
  Country: None (occurrence: None)
  Receive Date: 20090617
  Receipt Date: 20070118
  Transmission Date: 20091009
  Serious: Yes (Life-Threatening, Other)
  Sender: FDA-Public Use
  Company Number: B0579209A

PATIENT
  Age: 55 Year
  Sex: Male

DRUGS (7)
  1. ARTIST [Suspect]
     Indication: TACHYCARDIA
     Route: 048
  2. PROPOFOL [Suspect]
  3. FENTANYL [Suspect]
  4. VECURONIUM BROMIDE [Suspect]
  5. SEVOFLURANE [Suspect]
  6. EPHEDRINE HYDROCHLORIDE [Concomitant]
  7. AMEZINIUM METILSULFATE [Concomitant]

REACTIONS (4)
  - BRADYCARDIA [None]
  - CARDIAC ARREST [None]
  - ELECTROCARDIOGRAM ST SEGMENT DEPRESSION [None]
  - HYPOTENSION [None]
